FAERS Safety Report 9862320 (Version 1)
Quarter: 2014Q1

REPORT INFORMATION
  Report Type: Spontaneous
  Country: US (occurrence: US)
  Receive Date: 20140203
  Receipt Date: 20140203
  Transmission Date: 20141002
  Serious: Yes (Other)
  Sender: FDA-Public Use
  Company Number: US-BAYER-2014-016900

PATIENT
  Age: 21 Year
  Sex: Female
  Weight: 67.12 kg

DRUGS (3)
  1. YAZ [Suspect]
  2. OXYCODONE W/PARACETAMOL [Concomitant]
     Dosage: 5-325
  3. PRILOSEC [Concomitant]
     Dosage: 20 MG, UNK

REACTIONS (2)
  - Biliary dyskinesia [None]
  - Cholecystitis chronic [None]
